FAERS Safety Report 14559188 (Version 1)
Quarter: 2018Q1

REPORT INFORMATION
  Report Type: Spontaneous
  Country: DK (occurrence: DK)
  Receive Date: 20180221
  Receipt Date: 20180221
  Transmission Date: 20180509
  Serious: Yes (Death, Life-Threatening, Hospitalization)
  Sender: FDA-Public Use
  Company Number: DK-ROCHE-2076081

PATIENT
  Age: 64 Year
  Sex: Male

DRUGS (1)
  1. ACTILYSE [Suspect]
     Active Substance: ALTEPLASE
     Indication: THROMBOLYSIS
     Route: 065
     Dates: start: 20160901

REACTIONS (20)
  - Tracheostomy [Unknown]
  - Hemiplegia [Not Recovered/Not Resolved]
  - Electroencephalogram abnormal [Not Recovered/Not Resolved]
  - Ventriculo-peritoneal shunt [Unknown]
  - Eye movement disorder [Unknown]
  - Basal ganglia haemorrhage [Fatal]
  - Meningorrhagia [Fatal]
  - Necrosis [Not Recovered/Not Resolved]
  - Pneumonia [Unknown]
  - Anxiety [Unknown]
  - Seizure [Not Recovered/Not Resolved]
  - Dyspnoea [Unknown]
  - Intraventricular haemorrhage [Fatal]
  - Infection [Fatal]
  - Surgery [Unknown]
  - Muscle spasms [Unknown]
  - Brain injury [Not Recovered/Not Resolved]
  - Vomiting [Unknown]
  - Tongue biting [Unknown]
  - Hydrocephalus [Not Recovered/Not Resolved]

NARRATIVE: CASE EVENT DATE: 201609
